FAERS Safety Report 26097926 (Version 1)
Quarter: 2025Q4

REPORT INFORMATION
  Report Type: Spontaneous
  Country: EU (occurrence: EU)
  Receive Date: 20251127
  Receipt Date: 20251127
  Transmission Date: 20260117
  Serious: Yes (Other)
  Sender: CHEPLAPHARM
  Company Number: None

PATIENT
  Age: 23 Year
  Sex: Female

DRUGS (12)
  1. OLANZAPINE [Interacting]
     Active Substance: OLANZAPINE
     Indication: Psychiatric symptom
     Dosage: DAILY DOSE: 20 MILLIGRAM
     Route: 048
     Dates: start: 20250908
  2. OLANZAPINE [Interacting]
     Active Substance: OLANZAPINE
     Indication: Psychiatric symptom
     Dosage: DAILY DOSE: 15 MILLIGRAM
     Route: 048
     Dates: start: 20251027
  3. OLANZAPINE [Interacting]
     Active Substance: OLANZAPINE
     Indication: Psychiatric symptom
     Dosage: DAILY DOSE: 10 MILLIGRAM
     Route: 048
     Dates: start: 20251028
  4. CARBAMAZEPINE [Interacting]
     Active Substance: CARBAMAZEPINE
     Indication: Psychiatric symptom
     Dosage: 7 DAY ?DAILY DOSE: 400 MILLIGRAM
     Route: 048
     Dates: start: 20251020, end: 20251020
  5. CARBAMAZEPINE [Interacting]
     Active Substance: CARBAMAZEPINE
     Indication: Psychiatric symptom
     Dosage: DAILY DOSE: 600 MILLIGRAM
     Route: 048
     Dates: start: 20251021, end: 20251023
  6. CARBAMAZEPINE [Interacting]
     Active Substance: CARBAMAZEPINE
     Indication: Psychiatric symptom
     Dosage: DAILY DOSE: 1000 MILLIGRAM
     Route: 048
     Dates: start: 20251024, end: 20251024
  7. CARBAMAZEPINE [Interacting]
     Active Substance: CARBAMAZEPINE
     Indication: Psychiatric symptom
     Dosage: DAILY DOSE: 1200 MILLIGRAM
     Route: 048
     Dates: start: 20251025, end: 20251027
  8. LORMETAZEPAM [Interacting]
     Active Substance: LORMETAZEPAM
     Indication: Insomnia
     Dosage: DAILY DOSE: 2 MILLIGRAM
     Route: 048
     Dates: start: 20250922
  9. TERALITHE [Interacting]
     Active Substance: LITHIUM CARBONATE
     Indication: Psychiatric symptom
     Dosage: 600 MG IN THE EVENING ON EVEN DAYS AND 800 MG IN THE EVENING ON ODD DAYS
     Route: 048
     Dates: start: 20250908
  10. TERALITHE [Interacting]
     Active Substance: LITHIUM CARBONATE
     Indication: Psychiatric symptom
     Dosage: 600 MG IN THE EVENING ON EVEN DAYS AND 800 MG IN THE EVENING ON ODD DAYS
     Route: 048
     Dates: start: 20250909
  11. DIAZEPAM [Interacting]
     Active Substance: DIAZEPAM
     Indication: Anxiety
     Dosage: DROPS?DAILY DOSE: 30 MILLIGRAM
     Route: 048
     Dates: start: 20250930
  12. LEVOTHYROXINE [Concomitant]
     Active Substance: LEVOTHYROXINE
     Indication: Anxiety
     Dosage: DROPS?DAILY DOSE: 10 MICROGRAM
     Route: 048
     Dates: start: 20250909

REACTIONS (2)
  - Cerebellar syndrome [Recovering/Resolving]
  - Drug interaction [Recovering/Resolving]

NARRATIVE: CASE EVENT DATE: 20251026
